FAERS Safety Report 7053178-8 (Version None)
Quarter: 2010Q4

REPORT INFORMATION
  Report Type: 
  Country: None (occurrence: None)
  Receive Date: 20101020
  Receipt Date: 20101011
  Transmission Date: 20110411
  Serious: Yes (Disabling, Other)
  Sender: FDA-Public Use
  Company Number: SE-ASTRAZENECA-2010SE25948

PATIENT
  Age: 66 Year
  Sex: Male

DRUGS (4)
  1. SEROQUEL [Suspect]
     Indication: BIPOLAR I DISORDER
     Route: 048
  2. LITHIUM [Suspect]
     Indication: BIPOLAR I DISORDER
     Route: 048
  3. METOTREXAT [Concomitant]
  4. ERGENYL [Concomitant]

REACTIONS (2)
  - COGNITIVE DISORDER [None]
  - NEUROPATHY PERIPHERAL [None]
